FAERS Safety Report 5835945-9 (Version None)
Quarter: 2008Q3

REPORT INFORMATION
  Report Type: 
  Country: None (occurrence: None)
  Receive Date: 20080805
  Receipt Date: 20080731
  Transmission Date: 20090109
  Serious: Yes (Life-Threatening)
  Sender: FDA-Public Use
  Company Number: SP02002

PATIENT
  Age: 73 Year
  Sex: Female
  Weight: 101 kg

DRUGS (10)
  1. MOVIPREP [Suspect]
     Indication: COLONOSCOPY
     Dosage: 1 LIT, ORAL
     Route: 048
     Dates: start: 20080713, end: 20080714
  2. MOVIPREP [Suspect]
     Indication: PREOPERATIVE CARE
     Dosage: 1 LIT, ORAL
     Route: 048
     Dates: start: 20080713, end: 20080714
  3. VALSARTAN [Concomitant]
  4. ATORVASTATIN [Concomitant]
  5. RAMIPRIL [Concomitant]
  6. CARVEDILOL [Concomitant]
  7. INSULIN [Concomitant]
  8. TORSEMIDE [Concomitant]
  9. METFORMIN HCL [Concomitant]
  10. MOXONIDIN [Concomitant]

REACTIONS (3)
  - ANURIA [None]
  - POLYURIA [None]
  - RENAL FAILURE ACUTE [None]
